FAERS Safety Report 8904130 (Version 2)
Quarter: 2016Q3

REPORT INFORMATION
  Report Type: Spontaneous
  Country: US (occurrence: US)
  Receive Date: 20121113
  Receipt Date: 20160711
  Transmission Date: 20161109
  Serious: Yes (Hospitalization, Other)
  Sender: FDA-Public Use
  Company Number: US-009507513-0608USA04964

PATIENT
  Sex: Female
  Weight: 66.22 kg

DRUGS (7)
  1. BONIVA [Suspect]
     Active Substance: IBANDRONATE SODIUM
     Indication: OSTEOPENIA
     Dosage: 150 MG, UNK
     Route: 048
     Dates: start: 200701, end: 201102
  2. CLONAZEPAM. [Concomitant]
     Active Substance: CLONAZEPAM
  3. FOSAMAX [Suspect]
     Active Substance: ALENDRONATE SODIUM
     Indication: OSTEOPENIA
     Dosage: 35 MG, QW
     Route: 048
     Dates: start: 2001
  4. NASONEX [Concomitant]
     Active Substance: MOMETASONE FUROATE
  5. MECLIZINE [Concomitant]
     Active Substance: MECLIZINE HYDROCHLORIDE
  6. TRIAMTERENE. [Concomitant]
     Active Substance: TRIAMTERENE
  7. FOSAMAX [Suspect]
     Active Substance: ALENDRONATE SODIUM
     Dosage: 70 MG, QW
     Route: 048
     Dates: end: 200701

REACTIONS (42)
  - Ageusia [Recovering/Resolving]
  - Oropharyngeal pain [Unknown]
  - Influenza [Unknown]
  - Fracture nonunion [Unknown]
  - Gastrooesophageal reflux disease [Unknown]
  - Hyperlipidaemia [Unknown]
  - Essential tremor [Unknown]
  - Bundle branch block left [Unknown]
  - Euthyroid sick syndrome [Unknown]
  - Nausea [Recovering/Resolving]
  - Myalgia [Recovered/Resolved]
  - Oesophageal stenosis [Unknown]
  - Foot operation [Unknown]
  - Haemorrhagic anaemia [Recovering/Resolving]
  - Chest pain [Unknown]
  - Dysphonia [Unknown]
  - Oral candidiasis [Recovered/Resolved]
  - Thrombocytopenia [Unknown]
  - Knee arthroplasty [Unknown]
  - Oral candidiasis [Recovered/Resolved]
  - Ankle fracture [Unknown]
  - Dental implantation [Unknown]
  - Enterocele repair [Unknown]
  - Large intestine polyp [Unknown]
  - Gastrooesophageal reflux disease [Recovered/Resolved]
  - Dysphagia [Recovering/Resolving]
  - Shoulder arthroplasty [Unknown]
  - Urinary tract infection [Unknown]
  - Acute kidney injury [Unknown]
  - Anosmia [Recovering/Resolving]
  - Pain [Unknown]
  - Asthma [Unknown]
  - Femur fracture [Unknown]
  - Eructation [Unknown]
  - Decreased immune responsiveness [Unknown]
  - Knee arthroplasty [Unknown]
  - Hypothyroidism [Unknown]
  - Vitamin D deficiency [Unknown]
  - Tooth extraction [Unknown]
  - Chronic kidney disease [Unknown]
  - Pain in extremity [Unknown]
  - Hypokalaemia [Unknown]

NARRATIVE: CASE EVENT DATE: 2004
